FAERS Safety Report 25776022 (Version 1)
Quarter: 2025Q3

REPORT INFORMATION
  Report Type: Spontaneous
  Country: VN (occurrence: VN)
  Receive Date: 20250909
  Receipt Date: 20250909
  Transmission Date: 20251021
  Serious: No
  Sender: ALKEM
  Company Number: VN-ALKEM LABORATORIES LIMITED-VN-ALKEM-2025-05606

PATIENT
  Age: 56 Year
  Sex: Male

DRUGS (10)
  1. VANCOMYCIN [Suspect]
     Active Substance: VANCOMYCIN
     Indication: Evidence based treatment
     Dosage: 1 GRAM, BID (ON THE DAY OF ADMISSION)
     Route: 065
  2. CEFTRIAXONE [Suspect]
     Active Substance: CEFTRIAXONE
     Indication: Evidence based treatment
     Dosage: 2 GRAM, BID
     Route: 065
  3. DEXAMETHASONE [Suspect]
     Active Substance: DEXAMETHASONE
     Indication: Evidence based treatment
     Dosage: 12 MILLIGRAM, TID
     Route: 065
  4. DEXAMETHASONE [Suspect]
     Active Substance: DEXAMETHASONE
     Dosage: 8 MILLIGRAM, BID (RE-INITIATED AT A DECREASED DOSE)
     Route: 065
  5. SODIUM CHLORIDE [Suspect]
     Active Substance: SODIUM CHLORIDE
     Indication: Product used for unknown indication
     Route: 065
  6. MEROPENEM [Suspect]
     Active Substance: MEROPENEM
     Indication: Evidence based treatment
     Dosage: 2 GRAM, TID
     Route: 065
  7. AZITHROMYCIN [Concomitant]
     Active Substance: AZITHROMYCIN
     Indication: Mycobacterium avium complex infection
     Dosage: 500 MILLIGRAM, QD
     Route: 065
  8. CEFPODOXIME [Concomitant]
     Active Substance: CEFPODOXIME
     Indication: Sinusitis
     Route: 065
  9. ETHAMBUTOL [Concomitant]
     Active Substance: ETHAMBUTOL HYDROCHLORIDE
     Indication: Mycobacterium avium complex infection
     Dosage: 1200 MILLIGRAM, QD
     Route: 065
  10. RIFAMPIN [Concomitant]
     Active Substance: RIFAMPIN
     Indication: Mycobacterium avium complex infection
     Dosage: 600 MILLIGRAM, QD
     Route: 065

REACTIONS (1)
  - Therapy non-responder [Unknown]
